FAERS Safety Report 6272744-0 (Version None)
Quarter: 2009Q3

REPORT INFORMATION
  Report Type: 
  Country: None (occurrence: None)
  Receive Date: 20090717
  Receipt Date: 20090710
  Transmission Date: 20100115
  Serious: Yes (Other)
  Sender: FDA-Public Use
  Company Number: US-GENENTECH-286618

PATIENT
  Sex: Female

DRUGS (14)
  1. OMALIZUMAB [Suspect]
     Indication: SKIN TEST
     Dosage: UNK
     Route: 023
     Dates: start: 20090709, end: 20090709
  2. PULMICORT-100 [Concomitant]
     Indication: DRUG USE FOR UNKNOWN INDICATION
     Dosage: UNK
  3. ZYRTEC [Concomitant]
     Indication: DRUG USE FOR UNKNOWN INDICATION
  4. SINGULAIR [Concomitant]
     Indication: DRUG USE FOR UNKNOWN INDICATION
  5. NASONEX [Concomitant]
     Indication: DRUG USE FOR UNKNOWN INDICATION
  6. ASTEPRO [Concomitant]
     Indication: DRUG USE FOR UNKNOWN INDICATION
  7. XOPENEX [Concomitant]
     Indication: DRUG USE FOR UNKNOWN INDICATION
  8. PROVENTIL-HFA [Concomitant]
     Indication: DRUG USE FOR UNKNOWN INDICATION
  9. PREDNISONE [Concomitant]
     Indication: DRUG USE FOR UNKNOWN INDICATION
  10. NEXIUM [Concomitant]
     Indication: DRUG USE FOR UNKNOWN INDICATION
  11. ZANTAC [Concomitant]
     Indication: DRUG USE FOR UNKNOWN INDICATION
  12. BENADRYL [Concomitant]
     Indication: DRUG USE FOR UNKNOWN INDICATION
  13. VERAPAMIL [Concomitant]
     Indication: DRUG USE FOR UNKNOWN INDICATION
  14. ALBUTEROL [Suspect]

REACTIONS (1)
  - STATUS ASTHMATICUS [None]
